FAERS Safety Report 12829184 (Version 1)
Quarter: 2016Q4

REPORT INFORMATION
  Report Type: Spontaneous
  Country: US (occurrence: US)
  Receive Date: 20161007
  Receipt Date: 20161007
  Transmission Date: 20170207
  Serious: No
  Sender: FDA-Public Use
  Company Number: US-SA-2016SA010344

PATIENT
  Age: 59 Year
  Sex: Female

DRUGS (4)
  1. PREDNISONE. [Concomitant]
     Active Substance: PREDNISONE
  2. AUBAGIO [Suspect]
     Active Substance: TERIFLUNOMIDE
     Indication: MULTIPLE SCLEROSIS
     Route: 048
     Dates: start: 20151114
  3. AMPYRA [Concomitant]
     Active Substance: DALFAMPRIDINE
  4. APAP [Concomitant]
     Active Substance: ACETAMINOPHEN

REACTIONS (5)
  - Nausea [Unknown]
  - Influenza like illness [Unknown]
  - Malaise [Unknown]
  - Alopecia [Unknown]
  - Headache [Unknown]

NARRATIVE: CASE EVENT DATE: 20160105
